FAERS Safety Report 17740812 (Version 3)
Quarter: 2020Q2

REPORT INFORMATION
  Report Type: Report from Study
  Country: None (occurrence: BE)
  Receive Date: 20200504
  Receipt Date: 20200521
  Transmission Date: 20200714
  Serious: Yes (Death, Hospitalization, Other)
  Sender: FDA-Public Use
  Company Number: BE-ABBVIE-20K-013-3266607-00

PATIENT
  Sex: Female

DRUGS (3)
  1. DUODOPA [Suspect]
     Active Substance: CARBIDOPA\LEVODOPA
     Dosage: MD=4.5ML, CD=3.7ML/HR DURING 16HRS, ED=1.0ML
     Route: 050
     Dates: start: 20191212
  2. DUODOPA [Suspect]
     Active Substance: CARBIDOPA\LEVODOPA
     Indication: PARKINSON^S DISEASE
     Dosage: MD=4.5ML, CD=3.8ML/HR DURING 16HRS, ED=1ML
     Route: 050
     Dates: start: 20191114, end: 20191115
  3. DUODOPA [Suspect]
     Active Substance: CARBIDOPA\LEVODOPA
     Dosage: DOSES CONTINUOUSLY MONITORED AND ADAPTED
     Route: 050
     Dates: start: 20191115, end: 20191212

REACTIONS (16)
  - Pulmonary embolism [Fatal]
  - Pain in extremity [Unknown]
  - Blood pressure decreased [Unknown]
  - Immunodeficiency common variable [Fatal]
  - Hypoaesthesia [Unknown]
  - Gait disturbance [Unknown]
  - Pain [Unknown]
  - Breast mass [Fatal]
  - Disseminated intravascular coagulation [Fatal]
  - Paraesthesia [Unknown]
  - Vertigo [Unknown]
  - Breast cancer [Fatal]
  - General physical health deterioration [Fatal]
  - Asthenia [Unknown]
  - Fatigue [Unknown]
  - Fear [Unknown]

NARRATIVE: CASE EVENT DATE: 201911
